FAERS Safety Report 9742176 (Version 2)
Quarter: 2013Q4

REPORT INFORMATION
  Report Type: Report from Study
  Country: US (occurrence: US)
  Receive Date: 20131210
  Receipt Date: 20131210
  Transmission Date: 20140711
  Serious: Yes (Hospitalization, Other)
  Sender: FDA-Public Use
  Company Number: US-ROCHE-1228769

PATIENT
  Age: 60 Year
  Sex: Female
  Weight: 72.64 kg

DRUGS (5)
  1. AVASTIN [Suspect]
     Indication: COLORECTAL CANCER METASTATIC
     Route: 042
     Dates: start: 20110504
  2. AVASTIN [Suspect]
     Route: 042
     Dates: start: 201104
  3. 5-FU [Concomitant]
     Indication: COLORECTAL CANCER METASTATIC
     Route: 042
     Dates: start: 20110504, end: 20110608
  4. OXYCODONE [Concomitant]
     Indication: PAIN
     Route: 048
  5. MOTRIN [Concomitant]
     Indication: PAIN
     Route: 048

REACTIONS (11)
  - Diarrhoea [Recovered/Resolved]
  - Gastrointestinal motility disorder [Not Recovered/Not Resolved]
  - Back pain [Not Recovered/Not Resolved]
  - Nasal congestion [Not Recovered/Not Resolved]
  - Impaired healing [Unknown]
  - Dyspnoea [Not Recovered/Not Resolved]
  - Arthralgia [Not Recovered/Not Resolved]
  - Dysarthria [Recovered/Resolved]
  - Epistaxis [Not Recovered/Not Resolved]
  - Rectal haemorrhage [Recovered/Resolved]
  - Fracture [Unknown]
